FAERS Safety Report 6828769-7 (Version None)
Quarter: 2010Q3

REPORT INFORMATION
  Report Type: 
  Country: None (occurrence: None)
  Receive Date: 20100709
  Receipt Date: 20070216
  Transmission Date: 20110219
  Serious: No
  Sender: FDA-Public Use
  Company Number: US-PFIZER INC-2007014564

PATIENT
  Sex: Female
  Weight: 110.68 kg

DRUGS (1)
  1. CHANTIX [Suspect]
     Indication: SMOKING CESSATION THERAPY
     Dates: start: 20070131

REACTIONS (5)
  - COUGH [None]
  - DRY MOUTH [None]
  - DRY THROAT [None]
  - ORAL PAIN [None]
  - STOMATITIS [None]
